FAERS Safety Report 6764937-0 (Version None)
Quarter: 2010Q2

REPORT INFORMATION
  Report Type: 
  Country: None (occurrence: None)
  Receive Date: 20100610
  Receipt Date: 20100531
  Transmission Date: 20101027
  Serious: Yes (Death)
  Sender: FDA-Public Use
  Company Number: US-GENENTECH-302619

PATIENT

DRUGS (5)
  1. RITUXIMAB [Suspect]
     Indication: CHRONIC LYMPHOCYTIC LEUKAEMIA
     Dosage: 375 MG/M2, UNK
     Route: 042
  2. PENTOSTATIN [Suspect]
     Indication: CHRONIC LYMPHOCYTIC LEUKAEMIA
     Dosage: 4 MG/M2, Q21D
     Route: 042
  3. SULFAMETHOXAZOLE AND TRIMETHOPRIM [Concomitant]
     Indication: PROPHYLAXIS
     Dosage: UNK
  4. ACYCLOVIR [Concomitant]
     Indication: PROPHYLAXIS
     Dosage: UNK
  5. FILGRASTIM [Concomitant]
     Indication: DRUG USE FOR UNKNOWN INDICATION
     Dosage: UNK

REACTIONS (16)
  - CEREBROVASCULAR ACCIDENT [None]
  - DYSPNOEA [None]
  - HAEMOGLOBIN ABNORMAL [None]
  - HEADACHE [None]
  - HYPERSENSITIVITY [None]
  - HYPOTENSION [None]
  - INFECTION [None]
  - NEUTROPENIA [None]
  - PLATELET TOXICITY [None]
  - PLEURAL EFFUSION [None]
  - PNEUMONIA [None]
  - PNEUMONITIS [None]
  - RENAL FAILURE ACUTE [None]
  - SEPSIS [None]
  - THROMBOCYTOPENIA [None]
  - TUMOUR LYSIS SYNDROME [None]
